FAERS Safety Report 9341495 (Version 2)
Quarter: 2013Q2

REPORT INFORMATION
  Report Type: Spontaneous
  Country: JP (occurrence: JP)
  Receive Date: 20130611
  Receipt Date: 20130624
  Transmission Date: 20140414
  Serious: Yes (Other)
  Sender: FDA-Public Use
  Company Number: JP-009507513-1305JPN018044

PATIENT
  Age: 64 Year
  Sex: Female
  Weight: 60 kg

DRUGS (10)
  1. REBETOL [Suspect]
     Indication: CHRONIC HEPATITIS C
     Dosage: 600 MG, QD
     Route: 048
     Dates: start: 20130507, end: 20130513
  2. PEGINTRON [Suspect]
     Indication: CHRONIC HEPATITIS C
     Dosage: 1.5 MICROGRAM PER KILOGRAM, QW
     Route: 058
     Dates: start: 20130507, end: 20130513
  3. TELAVIC [Suspect]
     Indication: CHRONIC HEPATITIS C
     Dosage: 2250 MG, QD
     Route: 048
     Dates: start: 20130507, end: 20130513
  4. LANSOPRAZOLE [Suspect]
     Indication: ADVERSE REACTION
     Dosage: 30 MG, QD
     Route: 048
     Dates: start: 20130511, end: 20130518
  5. URSO [Concomitant]
     Indication: CHRONIC HEPATITIS C
     Dosage: 300 MG, QD,FOR:POR
     Route: 048
  6. ADALAT [Concomitant]
     Dosage: 40 MG, QD,FOR:POR
     Route: 048
  7. DIOVAN [Concomitant]
     Dosage: 80 MG, QD,FOR:POR
     Route: 048
  8. ARTIST [Concomitant]
     Dosage: 10 MG, QD,FOR:POR
     Route: 048
  9. CRESTOR [Concomitant]
     Dosage: 2.5 MG, QD
     Route: 048
  10. ZYLORIC [Concomitant]
     Dosage: 200 MG, QD,FOR:POR
     Route: 048

REACTIONS (1)
  - Renal impairment [Not Recovered/Not Resolved]
